FAERS Safety Report 10376978 (Version 1)
Quarter: 2014Q3

REPORT INFORMATION
  Report Type: Report from Study
  Country: US (occurrence: US)
  Receive Date: 20140812
  Receipt Date: 20140812
  Transmission Date: 20150326
  Serious: Yes (Other)
  Sender: FDA-Public Use
  Company Number: US-ROCHE-1448210

PATIENT
  Age: 8 Year
  Sex: Female
  Weight: 22.4 kg

DRUGS (1)
  1. NUTROPIN AQ [Suspect]
     Active Substance: SOMATROPIN
     Indication: TURNER^S SYNDROME
     Route: 058

REACTIONS (2)
  - Scoliosis [Unknown]
  - Cough [Unknown]

NARRATIVE: CASE EVENT DATE: 201401
